FAERS Safety Report 14544055 (Version 2)
Quarter: 2018Q1

REPORT INFORMATION
  Report Type: Report from Study
  Country: US (occurrence: US)
  Receive Date: 20180216
  Receipt Date: 20180328
  Transmission Date: 20180509
  Serious: Yes (Other)
  Sender: FDA-Public Use
  Company Number: US-ARIAD PHARMACEUTICALS, INC-2017US009235

PATIENT
  Sex: Female

DRUGS (1)
  1. PONATINIB [Suspect]
     Active Substance: PONATINIB
     Indication: CHRONIC MYELOID LEUKAEMIA RECURRENT
     Dosage: 30 MG, QD
     Route: 048
     Dates: start: 20171019

REACTIONS (5)
  - Hypoaesthesia [Unknown]
  - Somnolence [Unknown]
  - Fatigue [Unknown]
  - Chemotherapy [Not Recovered/Not Resolved]
  - Abdominal pain lower [Recovered/Resolved]
